FAERS Safety Report 6648158-8 (Version None)
Quarter: 2010Q1

REPORT INFORMATION
  Report Type: 
  Country: None (occurrence: None)
  Receive Date: 20100324
  Receipt Date: 20100311
  Transmission Date: 20100710
  Serious: No
  Sender: FDA-Public Use
  Company Number: AU-ELI_LILLY_AND_COMPANY-AU201001005980

PATIENT
  Sex: Male

DRUGS (4)
  1. CYMBALTA [Suspect]
     Indication: DEPRESSION
     Dosage: 90 MG, UNKNOWN
     Route: 065
  2. CYMBALTA [Suspect]
     Dosage: 60 MG, UNKNOWN
     Route: 065
  3. MIRTAZAPINE [Concomitant]
     Indication: DEPRESSION
     Dosage: 90 MG, UNKNOWN
     Route: 065
  4. MIRTAZAPINE [Concomitant]
     Dosage: 60 MG, UNKNOWN
     Route: 065

REACTIONS (3)
  - BLOOD IRON INCREASED [None]
  - HYPERURICAEMIA [None]
  - LIVER FUNCTION TEST ABNORMAL [None]
